FAERS Safety Report 6824543-6 (Version None)
Quarter: 2010Q3

REPORT INFORMATION
  Report Type: 
  Country: None (occurrence: None)
  Receive Date: 20100708
  Receipt Date: 20061108
  Transmission Date: 20110219
  Serious: No
  Sender: FDA-Public Use
  Company Number: US-PFIZER INC-2006138594

PATIENT
  Sex: Female
  Weight: 68.04 kg

DRUGS (8)
  1. CHANTIX [Suspect]
     Indication: SMOKING CESSATION THERAPY
     Dates: start: 20060901, end: 20060101
  2. POTASSIUM CHLORIDE [Concomitant]
  3. NEXIUM [Concomitant]
  4. PROZAC [Concomitant]
  5. DILAUDID [Concomitant]
  6. LOZOL [Concomitant]
  7. KLONOPIN [Concomitant]
  8. ESTRADIOL [Concomitant]

REACTIONS (1)
  - NAUSEA [None]
